FAERS Safety Report 26114463 (Version 1)
Quarter: 2025Q4

REPORT INFORMATION
  Report Type: Report from Study
  Country: EU (occurrence: EU)
  Receive Date: 20251202
  Receipt Date: 20251202
  Transmission Date: 20260117
  Serious: Yes (Other)
  Sender: ROCHE
  Company Number: EU-ML39632-2767724-0

PATIENT
  Age: 76 Year
  Sex: Male

DRUGS (3)
  1. OCREVUS [Suspect]
     Active Substance: OCRELIZUMAB
     Indication: Relapsing multiple sclerosis
     Dosage: MONTHS
     Route: 042
     Dates: start: 20201215, end: 20221215
  2. OCREVUS [Suspect]
     Active Substance: OCRELIZUMAB
     Route: 042
     Dates: start: 20230615
  3. OCREVUS [Suspect]
     Active Substance: OCRELIZUMAB
     Dosage: MONTHS
     Route: 042
     Dates: start: 20200604, end: 20200618

REACTIONS (1)
  - COVID-19 [Recovering/Resolving]

NARRATIVE: CASE EVENT DATE: 20241220
